FAERS Safety Report 6956263-1 (Version None)
Quarter: 2010Q3

REPORT INFORMATION
  Report Type: 
  Country: None (occurrence: None)
  Receive Date: 20100826
  Receipt Date: 20100810
  Transmission Date: 20110219
  Serious: Yes (Death)
  Sender: FDA-Public Use
  Company Number: APP201000644

PATIENT
  Age: 36 Year
  Sex: Female

DRUGS (3)
  1. HEPARIN SODIUM INJECTION [Suspect]
     Indication: INTRACRANIAL VENOUS SINUS THROMBOSIS
     Dosage: 10,000 UNITS/DAY
  2. CEFEPIME [Concomitant]
  3. ACYCLOVIR [Concomitant]

REACTIONS (4)
  - BRAIN HERNIATION [None]
  - CEREBELLAR HAEMORRHAGE [None]
  - HEPARIN-INDUCED THROMBOCYTOPENIA [None]
  - HYDROCEPHALUS [None]
